FAERS Safety Report 9698163 (Version 1)
Quarter: 2013Q4

REPORT INFORMATION
  Report Type: Spontaneous
  Country: PT (occurrence: None)
  Receive Date: 20131118
  Receipt Date: 20131118
  Transmission Date: 20140711
  Serious: Yes (Life-Threatening, Hospitalization)
  Sender: FDA-Public Use
  Company Number: 2013CP000134

PATIENT
  Age: 29 Year
  Sex: Female

DRUGS (5)
  1. PERFALGAN [Suspect]
     Indication: URINARY TRACT INFECTION
     Route: 042
     Dates: start: 20080211, end: 20080216
  2. SULFAMETHOXAZOLE AND TRIMETHOPRIM [Suspect]
     Indication: URINARY TRACT INFECTION
     Route: 048
     Dates: start: 20080204, end: 20080204
  3. AULIN [Concomitant]
  4. ETHINYLESTRADIOL [Concomitant]
  5. GESTODENE [Concomitant]

REACTIONS (7)
  - Hepatitis fulminant [None]
  - Encephalopathy [None]
  - Drug interaction [None]
  - Hepatitis toxic [None]
  - Toxicity to various agents [None]
  - Autoimmune hepatitis [None]
  - Liver transplant [None]
